FAERS Safety Report 8611027-8 (Version None)
Quarter: 2012Q3

REPORT INFORMATION
  Report Type: 
  Country: None (occurrence: None)
  Receive Date: 20120822
  Receipt Date: 20120816
  Transmission Date: 20120928
  Serious: Yes (Other)
  Sender: FDA-Public Use
  Company Number: SE-PFIZER INC-2012200672

PATIENT
  Age: 76 Year
  Sex: Male

DRUGS (4)
  1. LIPITOR [Suspect]
     Dosage: 80 MG, UNK
  2. CLOPIDOGREL [Concomitant]
     Dosage: UNK
  3. BRILINTA [Concomitant]
     Dosage: UNK
  4. RAMIPRIL [Concomitant]
     Dosage: UNK
     Dates: start: 20120807

REACTIONS (5)
  - HEPATIC FUNCTION ABNORMAL [None]
  - RHABDOMYOLYSIS [None]
  - RENAL FAILURE [None]
  - DYSPNOEA [None]
  - PAIN IN EXTREMITY [None]
